FAERS Safety Report 16340477 (Version 1)
Quarter: 2019Q2

REPORT INFORMATION
  Report Type: Spontaneous
  Country: GB (occurrence: GB)
  Receive Date: 20190522
  Receipt Date: 20190522
  Transmission Date: 20190711
  Serious: Yes (Hospitalization, Other)
  Sender: FDA-Public Use
  Company Number: GB-SA-2019SA133878

PATIENT
  Age: 85 Year
  Sex: Female

DRUGS (5)
  1. DOXAZOSIN MESILATE [Suspect]
     Active Substance: DOXAZOSIN MESYLATE
     Indication: ACCELERATED HYPERTENSION
     Dosage: 1 MG, UNK
     Route: 048
     Dates: start: 20060925
  2. FUROSEMIDE SODIUM [Concomitant]
     Active Substance: FUROSEMIDE SODIUM
     Dosage: UNK, UNK
  3. SIMVASTATIN. [Concomitant]
     Active Substance: SIMVASTATIN
     Dosage: UNK
  4. INDAPAMIDE. [Suspect]
     Active Substance: INDAPAMIDE
     Indication: ACCELERATED HYPERTENSION
     Dosage: 1.5 MG, UNK
     Route: 048
     Dates: start: 20060215, end: 20190414
  5. ASPIRIN [ACETYLSALICYLIC ACID] [Concomitant]
     Active Substance: ASPIRIN
     Dosage: UNK, UNK

REACTIONS (1)
  - Hyponatraemia [Recovered/Resolved]

NARRATIVE: CASE EVENT DATE: 20190411
